FAERS Safety Report 8423705-4 (Version None)
Quarter: 2012Q2

REPORT INFORMATION
  Report Type: 
  Country: None (occurrence: None)
  Receive Date: 20120608
  Receipt Date: 20111115
  Transmission Date: 20120825
  Serious: No
  Sender: FDA-Public Use
  Company Number: US-ASTRAZENECA-2011SE55358

PATIENT
  Age: 50 Year
  Sex: Male

DRUGS (3)
  1. ATACAND [Suspect]
     Dosage: 2 PER DAY
     Route: 048
  2. ATACAND [Suspect]
     Route: 048
  3. UNSPECIFIED [Concomitant]

REACTIONS (2)
  - HYPERTENSION [None]
  - DRUG DOSE OMISSION [None]
